FAERS Safety Report 9032717 (Version 1)
Quarter: 2013Q1

REPORT INFORMATION
  Report Type: Spontaneous
  Country: US (occurrence: None)
  Receive Date: 20130110
  Receipt Date: 20130110
  Transmission Date: 20140127
  Serious: Yes (Other)
  Sender: FDA-Public Use
  Company Number: 2012SA000515

PATIENT
  Sex: Male

DRUGS (1)
  1. CAPZASIN HP CREME / UNKNOWN / UNKNOWN [Suspect]
     Indication: MYALGIA
     Dates: start: 201212

REACTIONS (2)
  - Application site pain [None]
  - Application site erythema [None]
